FAERS Safety Report 10128640 (Version 1)
Quarter: 2014Q2

REPORT INFORMATION
  Report Type: Spontaneous
  Country: US (occurrence: US)
  Receive Date: 20140428
  Receipt Date: 20140428
  Transmission Date: 20141212
  Serious: Yes (Other)
  Sender: FDA-Public Use
  Company Number: US-BAYER-2014-061170

PATIENT
  Age: 28 Year
  Sex: Female

DRUGS (1)
  1. MIRENA [Suspect]
     Dosage: 20 MCG/24HR, CONT
     Route: 015
     Dates: start: 20040315, end: 20090528

REACTIONS (8)
  - Device dislocation [None]
  - Device dislocation [None]
  - Menorrhagia [None]
  - Abdominal pain [None]
  - Abdominal pain lower [None]
  - Genital haemorrhage [None]
  - Device misuse [None]
  - Injury [None]
